FAERS Safety Report 12772305 (Version 3)
Quarter: 2016Q3

REPORT INFORMATION
  Report Type: Report from Study
  Country: CA (occurrence: CA)
  Receive Date: 20160922
  Receipt Date: 20160926
  Transmission Date: 20161109
  Serious: Yes (Hospitalization, Other)
  Sender: FDA-Public Use
  Company Number: CA-ABBVIE-16K-028-1717332-00

PATIENT
  Sex: Male

DRUGS (2)
  1. HUMIRA [Suspect]
     Active Substance: ADALIMUMAB
     Route: 058
     Dates: start: 20160902
  2. HUMIRA [Suspect]
     Active Substance: ADALIMUMAB
     Indication: CROHN^S DISEASE
     Route: 058
     Dates: start: 20160622

REACTIONS (9)
  - Erosive duodenitis [Unknown]
  - Haemoglobin decreased [Unknown]
  - Crohn^s disease [Not Recovered/Not Resolved]
  - Asthenia [Unknown]
  - Intestinal mass [Unknown]
  - Ileal stenosis [Unknown]
  - Gastritis [Unknown]
  - Full blood count decreased [Not Recovered/Not Resolved]
  - Enteritis [Unknown]

NARRATIVE: CASE EVENT DATE: 2016
